FAERS Safety Report 19709215 (Version 3)
Quarter: 2021Q3

REPORT INFORMATION
  Report Type: Spontaneous
  Country: JP (occurrence: JP)
  Receive Date: 20210817
  Receipt Date: 20210831
  Transmission Date: 20211014
  Serious: Yes (Other)
  Sender: FDA-Public Use
  Company Number: JP-PFIZER INC-2021844734

PATIENT
  Age: 69 Year
  Sex: Female
  Weight: 41 kg

DRUGS (13)
  1. MEKTOVI [Suspect]
     Active Substance: BINIMETINIB
     Indication: COLON CANCER
     Dosage: 90 MG, 1X/DAY
     Route: 048
     Dates: start: 20210204, end: 20210209
  2. CETUXIMAB(GENETICAL RECOMBINATION) [Concomitant]
     Active Substance: CETUXIMAB
     Dosage: 336 MG
     Route: 065
     Dates: start: 20210303, end: 20210709
  3. BRAFTOVI [Suspect]
     Active Substance: ENCORAFENIB
     Dosage: 225 MG, 1X/DAY
     Route: 048
     Dates: start: 20210217, end: 20210223
  4. BRAFTOVI [Suspect]
     Active Substance: ENCORAFENIB
     Dosage: 225 MG, 1X/DAY
     Route: 048
     Dates: start: 20210303, end: 20210310
  5. CETUXIMAB(GENETICAL RECOMBINATION) [Concomitant]
     Active Substance: CETUXIMAB
     Indication: COLON CANCER
     Dosage: 537 MG
     Route: 065
     Dates: start: 20210204, end: 20210204
  6. CETUXIMAB(GENETICAL RECOMBINATION) [Concomitant]
     Active Substance: CETUXIMAB
     Dosage: 336 MG
     Route: 065
     Dates: start: 20210210, end: 20210217
  7. BRAFTOVI [Suspect]
     Active Substance: ENCORAFENIB
     Dosage: 225 MG, 1X/DAY
     Route: 048
     Dates: start: 20210318, end: 20210324
  8. BRAFTOVI [Suspect]
     Active Substance: ENCORAFENIB
     Dosage: 150 MG, 1X/DAY
     Route: 048
     Dates: start: 20210401, end: 20210715
  9. MEKTOVI [Suspect]
     Active Substance: BINIMETINIB
     Dosage: 60 MG, 1X/DAY
     Route: 048
     Dates: start: 20210217, end: 20210223
  10. MEKTOVI [Suspect]
     Active Substance: BINIMETINIB
     Dosage: 60 MG, 1X/DAY
     Route: 048
     Dates: start: 20210318, end: 20210324
  11. MEKTOVI [Suspect]
     Active Substance: BINIMETINIB
     Dosage: 30 MG, 1X/DAY
     Route: 048
     Dates: start: 20210401, end: 20210715
  12. MEKTOVI [Suspect]
     Active Substance: BINIMETINIB
     Dosage: 60 MG, 1X/DAY
     Route: 048
     Dates: start: 20210303, end: 20210310
  13. BRAFTOVI [Suspect]
     Active Substance: ENCORAFENIB
     Indication: COLON CANCER
     Dosage: 300 MG, 1X/DAY
     Route: 048
     Dates: start: 20210204, end: 20210209

REACTIONS (6)
  - Neuropathy peripheral [Unknown]
  - Serous retinal detachment [Recovering/Resolving]
  - Fatigue [Not Recovered/Not Resolved]
  - Intraocular pressure increased [Unknown]
  - Decreased appetite [Not Recovered/Not Resolved]
  - Neoplasm progression [Unknown]

NARRATIVE: CASE EVENT DATE: 20210210
